FAERS Safety Report 9707358 (Version 1)
Quarter: 2013Q4

REPORT INFORMATION
  Report Type: Spontaneous
  Country: US (occurrence: None)
  Receive Date: 20131122
  Receipt Date: 20131122
  Transmission Date: 20140711
  Serious: No
  Sender: FDA-Public Use
  Company Number: None

PATIENT
  Age: 63 Year
  Sex: Male
  Weight: 94 kg

DRUGS (1)
  1. AMOXICILLIN/CLAVULANATE [Suspect]
     Indication: KIDNEY INFECTION
     Dosage: 500/125 MG TID, PO.
     Route: 048
     Dates: start: 20130829, end: 20130914

REACTIONS (1)
  - Rash generalised [None]
